FAERS Safety Report 8826472 (Version 2)
Quarter: 2013Q2

REPORT INFORMATION
  Report Type: Report from Study
  Country: BR (occurrence: BR)
  Receive Date: 20121008
  Receipt Date: 20130506
  Transmission Date: 20140414
  Serious: Yes (Other)
  Sender: FDA-Public Use
  Company Number: PHHY2012BR087400

PATIENT
  Sex: Male
  Weight: 72 kg

DRUGS (2)
  1. FORASEQ [Suspect]
     Indication: CHRONIC OBSTRUCTIVE PULMONARY DISEASE
     Dosage: 2 DF, (UNKNOWN)
  2. FORASEQ [Suspect]
     Dosage: TWICE DAILY

REACTIONS (2)
  - Asthma [Recovering/Resolving]
  - Malaise [Unknown]
